FAERS Safety Report 4992240-8 (Version None)
Quarter: 2006Q2

REPORT INFORMATION
  Report Type: 
  Country: None (occurrence: None)
  Receive Date: 20060504
  Receipt Date: 20060330
  Transmission Date: 20061013
  Serious: Yes (Other)
  Sender: FDA-Public Use
  Company Number: US-ROCHE-442861

PATIENT
  Age: 52 Year
  Sex: Female
  Weight: 79.4 kg

DRUGS (23)
  1. PEGASYS [Suspect]
     Indication: HEPATITIS C
     Route: 058
     Dates: start: 20060303
  2. RIBAVIRIN [Suspect]
     Indication: HEPATITIS C
     Dosage: 600 MG/AM AND 600MG/PM.
     Route: 048
     Dates: start: 20060303
  3. VIVELLE-DOT [Concomitant]
     Indication: HORMONE REPLACEMENT THERAPY
     Route: 061
  4. TESTOSTERONE [Concomitant]
     Indication: HORMONE REPLACEMENT THERAPY
     Route: 061
  5. HORMONE NOS [Concomitant]
     Dosage: 'HORMONE  NOS' REPORTED COMPOSITION: BIEST 0.125% / PROGESTERONE 5% / TESTOSTERONE 0.4%.
  6. DITROPAN [Concomitant]
     Route: 048
  7. VITAMIN SUPPLEMENTS [Concomitant]
     Dosage: VITAMIN SUPPLEMENTS INCLUDING VITAMIN C, E, SOY, FOLIC ACID AND FLAX.
  8. SONATA [Concomitant]
     Indication: SOMNOLENCE
     Dosage: REPORTED DOSAGE REGIMEN 1 CAP AT BEDTIME WHEN NEEDED (QHSPRN).
     Route: 048
     Dates: start: 20060405
  9. MULTI-VITAMIN [Concomitant]
     Dosage: REPORTED AS B-MULTIVITAMIN.
  10. B12 [Concomitant]
  11. DHEA [Concomitant]
  12. PRIMROSE [Concomitant]
  13. OMEGA [Concomitant]
  14. GABA [Concomitant]
     Dosage: 500 MG (ONE TAB) IN THE EVENING IF AWAKE.
  15. MELATONIN [Concomitant]
     Dosage: THIRTY MINUTES BEFORE SLEEP.
  16. MILK THISTLE [Concomitant]
  17. FIORINAL [Concomitant]
     Indication: HEADACHE
     Dosage: REPORTED DOSE FORM: 1 TAB. REPORTED DOSAGE REGIMEN Q8HPRN.
  18. MAGNESIUM [Concomitant]
     Dosage: REPORTED AS MAG.
  19. CALCIUM GLUCONATE [Concomitant]
     Dosage: REPORTED AS CAL.
  20. ULTRA PREVENTIVE X [Concomitant]
     Dosage: REPORTED AS ULTRA PREVENTIVE. DOSAGE REGIMEN: FOUR TABS AM AND PM DAILY.
  21. GREEN TEA EXTRACT [Concomitant]
     Dosage: REPORTED AS GREEN TEA.
  22. UNSPECIFIED DRUG [Concomitant]
     Dosage: REPORTED AS FOCUS FACTOR.
  23. UNSPECIFIED DRUG [Concomitant]
     Dosage: REPORTED AS Q-GEL.

REACTIONS (12)
  - ANAEMIA [None]
  - BLOOD ELECTROLYTES DECREASED [None]
  - CONDITION AGGRAVATED [None]
  - DEHYDRATION [None]
  - EYE IRRITATION [None]
  - HEADACHE [None]
  - HEPATIC FIBROSIS [None]
  - HOT FLUSH [None]
  - INSOMNIA [None]
  - MIGRAINE [None]
  - NAUSEA [None]
  - VOMITING [None]
